FAERS Safety Report 12981765 (Version 1)
Quarter: 2016Q4

REPORT INFORMATION
  Report Type: Spontaneous
  Country: US (occurrence: US)
  Receive Date: 20161128
  Receipt Date: 20161128
  Transmission Date: 20170207
  Serious: Yes (Death)
  Sender: FDA-Public Use
  Company Number: None

PATIENT
  Age: 56 Year
  Sex: Male

DRUGS (4)
  1. ALPRAZOLAM. [Concomitant]
     Active Substance: ALPRAZOLAM
  2. MORPHINE [Concomitant]
     Active Substance: MORPHINE
  3. HYDROCODONE [Concomitant]
     Active Substance: HYDROCODONE
  4. ALECENSA [Suspect]
     Active Substance: ALECTINIB HYDROCHLORIDE
     Indication: LUNG NEOPLASM MALIGNANT
     Route: 049
     Dates: start: 20160127, end: 201611

REACTIONS (1)
  - Death [None]

NARRATIVE: CASE EVENT DATE: 201611
